FAERS Safety Report 19001275 (Version 1)
Quarter: 2021Q1

REPORT INFORMATION
  Report Type: Spontaneous
  Country: US (occurrence: US)
  Receive Date: 20210311
  Receipt Date: 20210311
  Transmission Date: 20210420
  Serious: Yes (Hospitalization, Other)
  Sender: FDA-Public Use
  Company Number: None

PATIENT
  Age: 62 Year
  Sex: Male

DRUGS (6)
  1. WARFARIN [Concomitant]
     Active Substance: WARFARIN
  2. PEGASYS [Suspect]
     Active Substance: PEGINTERFERON ALFA-2A
     Indication: POLYCYTHAEMIA VERA
     Dosage: ?          OTHER FREQUENCY:QWEEKLY;?
     Route: 058
     Dates: start: 20200819
  3. TUMS [Concomitant]
     Active Substance: CALCIUM CARBONATE
  4. JAKAFI [Concomitant]
     Active Substance: RUXOLITINIB
  5. PRADAXA [Concomitant]
     Active Substance: DABIGATRAN ETEXILATE MESYLATE
  6. PRADAXA/ARIXTRA [Concomitant]

REACTIONS (2)
  - Drug ineffective [None]
  - Thrombosis [None]

NARRATIVE: CASE EVENT DATE: 20210215
